FAERS Safety Report 10770763 (Version 2)
Quarter: 2015Q1

REPORT INFORMATION
  Report Type: Spontaneous
  Country: US (occurrence: None)
  Receive Date: 20150206
  Receipt Date: 20150206
  Transmission Date: 20150721
  Serious: No
  Sender: FDA-Public Use
  Company Number: HYP201305-000003

PATIENT
  Age: 38 Year
  Sex: Female
  Weight: 63.5 kg

DRUGS (5)
  1. RAVICTI [Suspect]
     Active Substance: GLYCEROL PHENYLBUTYRATE
     Indication: UREA CYCLE ENZYME DEFICIENCY
     Route: 048
     Dates: start: 201304, end: 20130429
  2. PRISTIQ (DESVENLAFAXINE) [Concomitant]
  3. NEXIUM [Concomitant]
     Active Substance: ESOMEPRAZOLE MAGNESIUM
  4. GEODON (ZIPRASIDONE) [Concomitant]
  5. BUSPAR [Suspect]
     Active Substance: BUSPIRONE HYDROCHLORIDE
     Indication: ANXIETY
     Dates: start: 20130425

REACTIONS (6)
  - Dizziness [None]
  - Weight decreased [None]
  - Nausea [None]
  - Fatigue [None]
  - Asthenia [None]
  - Headache [None]

NARRATIVE: CASE EVENT DATE: 20130427
